FAERS Safety Report 13325953 (Version 1)
Quarter: 2017Q1

REPORT INFORMATION
  Report Type: Spontaneous
  Country: US (occurrence: US)
  Receive Date: 20170310
  Receipt Date: 20170310
  Transmission Date: 20170428
  Serious: Yes (Other)
  Sender: FDA-Public Use
  Company Number: US-ALLERGAN-1709187US

PATIENT
  Sex: Female

DRUGS (1)
  1. BOTOX [Suspect]
     Active Substance: ONABOTULINUMTOXINA
     Indication: LIMB DISCOMFORT
     Dosage: 150 UNITS, SINGLE
     Route: 030

REACTIONS (2)
  - Atrioventricular block [Unknown]
  - Off label use [Unknown]
